FAERS Safety Report 24710552 (Version 1)
Quarter: 2024Q4

REPORT INFORMATION
  Report Type: Spontaneous
  Country: JP (occurrence: JP)
  Receive Date: 20241209
  Receipt Date: 20241209
  Transmission Date: 20250115
  Serious: Yes (Other)
  Sender: AMGEN
  Company Number: JP-AMGEN-JPNSP2024239162

PATIENT

DRUGS (2)
  1. ROMOSOZUMAB [Suspect]
     Active Substance: ROMOSOZUMAB
     Indication: Osteoporosis
     Dosage: 210 MILLIGRAM, QMO
     Route: 058
  2. TERIPARATIDE [Suspect]
     Active Substance: TERIPARATIDE
     Indication: Osteoporosis
     Dosage: 20 MICROGRAM, QD
     Route: 058

REACTIONS (17)
  - Cerebral infarction [Unknown]
  - Cerebral haemorrhage [Unknown]
  - Femur fracture [Unknown]
  - Arrhythmia [Unknown]
  - Headache [Unknown]
  - Injection site pain [Unknown]
  - Injection site swelling [Unknown]
  - Fatigue [Unknown]
  - Eczema [Unknown]
  - Hypocalcaemia [Unknown]
  - Drug ineffective [Unknown]
  - Nausea [Unknown]
  - Discomfort [Unknown]
  - Abdominal discomfort [Unknown]
  - Cold sweat [Unknown]
  - Blood pressure increased [Unknown]
  - Swelling [Unknown]
